FAERS Safety Report 19981612 (Version 1)
Quarter: 2021Q4

REPORT INFORMATION
  Report Type: Spontaneous
  Country: US (occurrence: US)
  Receive Date: 20211022
  Receipt Date: 20211022
  Transmission Date: 20220303
  Serious: No
  Sender: FDA-Public Use
  Company Number: US-ALLERGAN-2107080US

PATIENT
  Age: 58 Year
  Sex: Male

DRUGS (7)
  1. RECTIV [Suspect]
     Active Substance: NITROGLYCERIN
     Indication: Anal fissure
     Dosage: 1 INCH BID
     Dates: start: 20210127
  2. RECTIV [Suspect]
     Active Substance: NITROGLYCERIN
     Indication: Proctalgia
  3. RECTIV [Suspect]
     Active Substance: NITROGLYCERIN
     Indication: Anorectal discomfort
  4. RECTIV [Suspect]
     Active Substance: NITROGLYCERIN
     Indication: Anal haemorrhage
  5. CRESTOR [Concomitant]
     Active Substance: ROSUVASTATIN CALCIUM
     Indication: Blood cholesterol increased
     Dosage: 5 MG
  6. BENICAR [Concomitant]
     Active Substance: OLMESARTAN MEDOXOMIL
     Indication: Hypertension
     Dosage: 40 MG
  7. LEVOTHYROXINE [Concomitant]
     Active Substance: LEVOTHYROXINE
     Indication: Hypothyroidism
     Dosage: 88 ?G

REACTIONS (5)
  - Off label use [Unknown]
  - Product packaging quantity issue [Unknown]
  - Headache [Recovered/Resolved]
  - Drug ineffective [Unknown]
  - Drug ineffective for unapproved indication [Unknown]
